FAERS Safety Report 18186518 (Version 1)
Quarter: 2020Q3

REPORT INFORMATION
  Report Type: Spontaneous
  Country: FR (occurrence: FR)
  Receive Date: 20200824
  Receipt Date: 20200824
  Transmission Date: 20201103
  Serious: Yes (Other)
  Sender: FDA-Public Use
  Company Number: FR-ACCORD-196882

PATIENT
  Age: 87 Year
  Sex: Male
  Weight: 75.3 kg

DRUGS (13)
  1. UVEDOSE [Concomitant]
     Active Substance: CHOLECALCIFEROL
     Dosage: STRENGTH: 100,000 IU, ORAL SOLUTION IN AMPOULE
  2. ROSUVASTATIN/ROSUVASTATIN CALCIUM [Concomitant]
     Active Substance: ROSUVASTATIN CALCIUM
  3. PREVISCAN [Concomitant]
     Dosage: STRENGTH: 20 MG, SCORED TABLET
  4. MOVICOL [Concomitant]
     Active Substance: POLYETHYLENE GLYCOL 3350\POTASSIUM CHLORIDE\SODIUM BICARBONATE\SODIUM CHLORIDE
  5. PARACETAMOL [Concomitant]
     Active Substance: ACETAMINOPHEN
  6. CALTRATE WITH VITAMIN D [Concomitant]
     Active Substance: CALCIUM CARBONATE\CHOLECALCIFEROL
     Dosage: STRENGTH: 600 MG / 400 IU, SCORED FILM?COATED TABLET
  7. STILNOX [Concomitant]
     Active Substance: ZOLPIDEM TARTRATE
     Dosage: STRENGTH: 10 MG, SCORED FILM?COATED TABLET
  8. AMIODARONE [Concomitant]
     Active Substance: AMIODARONE
  9. DIFFU K [Concomitant]
     Active Substance: POTASSIUM CHLORIDE
  10. IRBESARTAN. [Concomitant]
     Active Substance: IRBESARTAN
  11. FUROSEMIDE. [Suspect]
     Active Substance: FUROSEMIDE
     Indication: PRODUCT USED FOR UNKNOWN INDICATION
     Route: 048
     Dates: start: 201707
  12. NEBIVOLOL. [Concomitant]
     Active Substance: NEBIVOLOL
  13. AMLODIPINE [Concomitant]
     Active Substance: AMLODIPINE BESYLATE

REACTIONS (1)
  - Gout [Recovering/Resolving]

NARRATIVE: CASE EVENT DATE: 202005
